FAERS Safety Report 7541098-1 (Version None)
Quarter: 2011Q2

REPORT INFORMATION
  Report Type: 
  Country: None (occurrence: None)
  Receive Date: 20110610
  Receipt Date: 20110526
  Transmission Date: 20111010
  Serious: Yes (Other)
  Sender: FDA-Public Use
  Company Number: US-ARROW GEN-2011-07813

PATIENT
  Age: 79 Year
  Sex: Male

DRUGS (3)
  1. MIRTAZAPINE [Suspect]
     Indication: DEPRESSION
     Dosage: 30 MG, DAILY
  2. QUETIAPINE [Suspect]
     Indication: DEPRESSION
     Dosage: 12.5 MG, BID
  3. VENLAFAXINE HCL [Suspect]
     Indication: DEPRESSION
     Dosage: 225 MG, DAILY

REACTIONS (1)
  - SEROTONIN SYNDROME [None]
